FAERS Safety Report 8876365 (Version 1)
Quarter: 2012Q4

REPORT INFORMATION
  Report Type: 
  Country: NL (occurrence: NL)
  Receive Date: 20121030
  Receipt Date: 20121030
  Transmission Date: 20130627
  Serious: Yes (Hospitalization, Disabling)
  Sender: FDA-Public Use
  Company Number: NL-ACTELION-A-CH2012-73055

PATIENT
  Age: 71 Year
  Sex: Male

DRUGS (3)
  1. TRACLEER [Suspect]
     Indication: PULMONARY HYPERTENSION
     Dosage: 125 mg, bid
     Route: 048
  2. TRACLEER [Suspect]
     Dosage: 62.5 mg, bid
     Route: 048
     Dates: start: 20040406
  3. REVATIO [Concomitant]
     Dosage: UNK
     Dates: start: 2008

REACTIONS (8)
  - Oedema [Recovered/Resolved]
  - Bursitis [Not Recovered/Not Resolved]
  - Oxygen saturation decreased [Recovered/Resolved]
  - Fluid retention [Recovered/Resolved]
  - Liver disorder [Recovered/Resolved]
  - Weight increased [Recovered/Resolved]
  - Organ failure [Recovered/Resolved]
  - Nasal disorder [Recovered/Resolved]
